FAERS Safety Report 6491789-9 (Version None)
Quarter: 2009Q4

REPORT INFORMATION
  Report Type: 
  Country: None (occurrence: None)
  Receive Date: 20091210
  Receipt Date: 20091128
  Transmission Date: 20100525
  Serious: Yes (Hospitalization)
  Sender: FDA-Public Use
  Company Number: 233228J09USA

PATIENT
  Age: 44 Year
  Sex: Female

DRUGS (2)
  1. REBIF [Suspect]
     Indication: MULTIPLE SCLEROSIS
     Dosage: 8.8 MCG
     Dates: start: 20091112, end: 20091101
  2. METHYLPREDNISOLONE [Concomitant]

REACTIONS (5)
  - ABDOMINAL PAIN UPPER [None]
  - DISEASE COMPLICATION [None]
  - DYSPNOEA [None]
  - MULTIPLE SCLEROSIS [None]
  - NASAL CONGESTION [None]
